FAERS Safety Report 21502954 (Version 2)
Quarter: 2022Q4

REPORT INFORMATION
  Report Type: Report from Study
  Country: US (occurrence: US)
  Receive Date: 20221025
  Receipt Date: 20221202
  Transmission Date: 20230113
  Serious: Yes (Other)
  Sender: FDA-Public Use
  Company Number: US-BRISTOL-MYERS SQUIBB COMPANY-2022-125260

PATIENT
  Age: 40 Year
  Sex: Female
  Weight: 120.2 kg

DRUGS (24)
  1. REVLIMID [Suspect]
     Active Substance: LENALIDOMIDE
     Indication: Plasma cell myeloma
     Dosage: 10 MG ONCE DAILY
     Route: 048
     Dates: start: 20220216
  2. OXYCODONE [Suspect]
     Active Substance: OXYCODONE
     Indication: Pain
     Dosage: FREQUENCY: AS NEEDED
     Route: 065
  3. DEXAMETHASONE [Concomitant]
     Active Substance: DEXAMETHASONE
     Indication: Product use in unapproved indication
     Route: 065
  4. BUPROPION HYDROCHLORIDE [Concomitant]
     Active Substance: BUPROPION HYDROCHLORIDE
     Indication: Product use in unapproved indication
     Route: 065
  5. METOPROLOL SUCCINATE [Concomitant]
     Active Substance: METOPROLOL SUCCINATE
     Indication: Product use in unapproved indication
     Route: 065
  6. LORAZEPAM [Concomitant]
     Active Substance: LORAZEPAM
     Indication: Product use in unapproved indication
     Route: 065
  7. OMEPRAZOLE [Concomitant]
     Active Substance: OMEPRAZOLE
     Indication: Product use in unapproved indication
     Route: 065
  8. CALCIUM\VITAMIN D [Concomitant]
     Active Substance: CALCIUM\VITAMIN D
     Indication: Product use in unapproved indication
     Route: 065
  9. VITAMIN B12 [Concomitant]
     Active Substance: CYANOCOBALAMIN
     Indication: Product use in unapproved indication
     Route: 065
  10. FLUCONAZOLE [Concomitant]
     Active Substance: FLUCONAZOLE
     Indication: Product use in unapproved indication
     Route: 065
  11. ACYCLOVIR [Concomitant]
     Active Substance: ACYCLOVIR
     Indication: Product use in unapproved indication
     Route: 065
  12. EXEMESTANE [Concomitant]
     Active Substance: EXEMESTANE
     Indication: Product use in unapproved indication
     Route: 065
  13. ATORVASTATIN CALCIUM [Concomitant]
     Active Substance: ATORVASTATIN CALCIUM
     Indication: Product use in unapproved indication
     Route: 065
  14. ELIQUIS [Concomitant]
     Active Substance: APIXABAN
     Indication: Product use in unapproved indication
     Route: 065
  15. ALEVE [Concomitant]
     Active Substance: NAPROXEN SODIUM
     Indication: Product use in unapproved indication
     Route: 065
  16. DARZALEX [Concomitant]
     Active Substance: DARATUMUMAB
     Indication: Product use in unapproved indication
     Route: 065
  17. VELCADE [Concomitant]
     Active Substance: BORTEZOMIB
     Indication: Product use in unapproved indication
     Route: 065
  18. MAGNESIUM [Concomitant]
     Active Substance: MAGNESIUM
     Indication: Product use in unapproved indication
     Route: 065
  19. LEVOTHYROXINE [Concomitant]
     Active Substance: LEVOTHYROXINE
     Indication: Product use in unapproved indication
     Route: 065
  20. CALCIUM 500+VITAMIN D [Concomitant]
     Indication: Product use in unapproved indication
     Route: 065
  21. MINERALS\VITAMINS [Concomitant]
     Active Substance: MINERALS\VITAMINS
     Indication: Product use in unapproved indication
     Dosage: DAILY
     Route: 065
  22. SULFAMETHOXAZOLE\TRIMETHOPRIM [Concomitant]
     Active Substance: SULFAMETHOXAZOLE\TRIMETHOPRIM
     Indication: Product use in unapproved indication
     Route: 065
  23. BUPROPION [Concomitant]
     Active Substance: BUPROPION
     Indication: Product use in unapproved indication
     Route: 065
  24. METOPROLOL TARTRATE [Concomitant]
     Active Substance: METOPROLOL TARTRATE
     Indication: Product use in unapproved indication
     Route: 065

REACTIONS (5)
  - Gastrointestinal disorder [Not Recovered/Not Resolved]
  - Nausea [Unknown]
  - Vomiting [Unknown]
  - Oropharyngeal pain [Recovered/Resolved]
  - Pain [Unknown]

NARRATIVE: CASE EVENT DATE: 20221019
